FAERS Safety Report 11293115 (Version 3)
Quarter: 2015Q3

REPORT INFORMATION
  Report Type: Spontaneous
  Country: US (occurrence: US)
  Receive Date: 20150722
  Receipt Date: 20150826
  Transmission Date: 20151125
  Serious: Yes (Death, Hospitalization)
  Sender: FDA-Public Use
  Company Number: US-UNITED THERAPEUTICS-UNT-2015-008519

PATIENT
  Age: 52 Year
  Sex: Male
  Weight: 101.59 kg

DRUGS (5)
  1. TYVASO [Suspect]
     Active Substance: TREPROSTINIL
     Dosage: 18-54 MCG, QID
  2. ADCIRCA [Concomitant]
     Active Substance: TADALAFIL
     Indication: PRODUCT USED FOR UNKNOWN INDICATION
  3. OPSUMIT [Concomitant]
     Active Substance: MACITENTAN
     Indication: PRODUCT USED FOR UNKNOWN INDICATION
  4. COUMADIN [Concomitant]
     Active Substance: WARFARIN SODIUM
     Indication: PRODUCT USED FOR UNKNOWN INDICATION
  5. TYVASO [Suspect]
     Active Substance: TREPROSTINIL
     Indication: PULMONARY ARTERIAL HYPERTENSION
     Dosage: 18-54 MCG, QID
     Dates: start: 20150306

REACTIONS (8)
  - Anaemia [Not Recovered/Not Resolved]
  - Dyspnoea [Unknown]
  - Cor pulmonale [Not Recovered/Not Resolved]
  - Oedema peripheral [Unknown]
  - Acute respiratory failure [Not Recovered/Not Resolved]
  - Death [Fatal]
  - Hepatic haemorrhage [Unknown]
  - Vascular neoplasm [Not Recovered/Not Resolved]

NARRATIVE: CASE EVENT DATE: 201507
